FAERS Safety Report 6663347-4 (Version None)
Quarter: 2010Q2

REPORT INFORMATION
  Report Type: 
  Country: None (occurrence: None)
  Receive Date: 20100401
  Receipt Date: 20100323
  Transmission Date: 20101027
  Serious: Yes (Hospitalization)
  Sender: FDA-Public Use
  Company Number: US-NOVOPROD-306082

PATIENT
  Age: 50 Year
  Sex: Male
  Weight: 98.2 kg

DRUGS (5)
  1. NORDITROPIN NORDIFLEX [Suspect]
     Indication: FATIGUE
     Dosage: UNK , UNK
     Route: 058
  2. NORDITROPIN NORDIFLEX [Suspect]
     Indication: DECREASED ACTIVITY
  3. NORDITROPIN NORDIFLEX [Suspect]
  4. NORDITROPIN NORDIFLEX [Suspect]
     Indication: MUSCLE ATROPHY
  5. NORDITROPIN NORDIFLEX [Suspect]
     Indication: LETHARGY

REACTIONS (4)
  - AMNESIA [None]
  - CAROTID ARTERY DISSECTION [None]
  - CEREBELLAR ATROPHY [None]
  - EMPTY SELLA SYNDROME [None]
